FAERS Safety Report 10024560 (Version 1)
Quarter: 2014Q1

REPORT INFORMATION
  Report Type: Spontaneous
  Country: US (occurrence: None)
  Receive Date: 20140304
  Receipt Date: 20140304
  Transmission Date: 20141002
  Serious: Yes (Hospitalization)
  Sender: FDA-Public Use
  Company Number: KV201300257

PATIENT
  Sex: Female

DRUGS (2)
  1. MAKENA [Suspect]
     Indication: PREMATURE DELIVERY
     Dosage: 250 MG, ONCE WEEKLY, INTRAMUSCULAR
     Route: 030
     Dates: start: 20130727, end: 20130810
  2. MAKENA [Suspect]
     Indication: OFF LABEL USE
     Dosage: 250 MG, ONCE WEEKLY, INTRAMUSCULAR
     Route: 030
     Dates: start: 20130727, end: 20130810

REACTIONS (5)
  - Deep vein thrombosis [None]
  - Injection site haematoma [None]
  - Injection site swelling [None]
  - Injection site pain [None]
  - Off label use [None]
